FAERS Safety Report 8170593-X (Version None)
Quarter: 2012Q1

REPORT INFORMATION
  Report Type: 
  Country: None (occurrence: None)
  Receive Date: 20120228
  Receipt Date: 20120221
  Transmission Date: 20120608
  Serious: Yes (Hospitalization)
  Sender: FDA-Public Use
  Company Number: SE-ROCHE-1042089

PATIENT

DRUGS (1)
  1. AVASTIN [Suspect]
     Indication: COLORECTAL CANCER METASTATIC
     Dosage: ROUTE, DOSE , FORM AND FREQUENCY: NOT REPORTED, TREATMENT DELAYED
     Dates: start: 20120102

REACTIONS (1)
  - INTERVERTEBRAL DISC PROTRUSION [None]
